FAERS Safety Report 4865914-7 (Version None)
Quarter: 2005Q4

REPORT INFORMATION
  Report Type: 
  Country: None (occurrence: None)
  Receive Date: 20051226
  Receipt Date: 20051216
  Transmission Date: 20060501
  Serious: Yes (Other)
  Sender: FDA-Public Use
  Company Number: PHBS2005JP18738

PATIENT
  Sex: Female

DRUGS (1)
  1. METHERGINE [Suspect]
     Route: 063

REACTIONS (2)
  - DRUG EXPOSURE VIA BREAST MILK [None]
  - HAEMATOCHEZIA [None]
